FAERS Safety Report 12933120 (Version 2)
Quarter: 2017Q4

REPORT INFORMATION
  Report Type: Spontaneous
  Country: GB (occurrence: GB)
  Receive Date: 20161111
  Receipt Date: 20171026
  Transmission Date: 20180320
  Serious: Yes (Death, Other)
  Sender: FDA-Public Use
  Company Number: GB-PFIZER INC-2014357311

PATIENT
  Age: 31 Year
  Sex: Male
  Weight: 91 kg

DRUGS (30)
  1. LORAZEPAM. [Suspect]
     Active Substance: LORAZEPAM
     Dosage: UNK, AS NEEDED
  2. ZAPONEX [Suspect]
     Active Substance: CLOZAPINE
     Dosage: UNK, AS NEEDED
     Route: 048
     Dates: start: 20061113, end: 200705
  3. CALCIUM PANTOTHENATE [Concomitant]
     Active Substance: CALCIUM PANTOTHENATE
     Dosage: UNK
  4. THIAMINE HYDROCHLORIDE. [Concomitant]
     Active Substance: THIAMINE HYDROCHLORIDE
  5. ABILIFY [Suspect]
     Active Substance: ARIPIPRAZOLE
     Dosage: UNK
  6. ZAPONEX [Suspect]
     Active Substance: CLOZAPINE
     Dosage: UNK, AS NEEDED
     Route: 048
     Dates: start: 20100105, end: 20100402
  7. LACTULOSE. [Concomitant]
     Active Substance: LACTULOSE
     Dosage: UNK
  8. PANTHENOL [Concomitant]
     Active Substance: PANTHENOL
  9. RETINOL PALMITATE [Concomitant]
  10. ZAPONEX [Suspect]
     Active Substance: CLOZAPINE
     Dosage: UNK, AS NEEDED
     Route: 048
     Dates: start: 20070607, end: 20071101
  11. DEPAKOTE [Concomitant]
     Active Substance: DIVALPROEX SODIUM
     Dosage: UNK
  12. METFORMIN [Concomitant]
     Active Substance: METFORMIN HYDROCHLORIDE
     Dosage: UNK
  13. TOCOPHERYL ACETATE [Concomitant]
     Active Substance: .ALPHA.-TOCOPHEROL ACETATE
     Dosage: UNK
  14. PYRIDOXINE HYDROCHLORIDE. [Concomitant]
     Active Substance: PYRIDOXINE HYDROCHLORIDE
     Dosage: UNK
  15. CYANOCOBALAMIN. [Concomitant]
     Active Substance: CYANOCOBALAMIN
     Dosage: UNK
  16. SUBUTEX [Suspect]
     Active Substance: BUPRENORPHINE HYDROCHLORIDE
     Dosage: UNK
  17. ZAPONEX [Suspect]
     Active Substance: CLOZAPINE
     Dosage: UNK
     Route: 048
     Dates: start: 20140404, end: 20140816
  18. RIBOFLAVIN [Concomitant]
     Active Substance: RIBOFLAVIN
  19. ZAPONEX [Suspect]
     Active Substance: CLOZAPINE
     Dosage: UNK, AS NEEDED
     Route: 048
     Dates: start: 20080529, end: 200912
  20. ORLISTAT. [Suspect]
     Active Substance: ORLISTAT
     Dosage: UNK
  21. MULTIVITAMINS [Concomitant]
     Active Substance: VITAMINS
     Dosage: UNK
  22. ZAPONEX [Suspect]
     Active Substance: CLOZAPINE
     Dosage: UNK, AS NEEDED
     Route: 048
     Dates: start: 20110317, end: 201111
  23. DOCUSATE SODIUM. [Concomitant]
     Active Substance: DOCUSATE SODIUM
     Dosage: UNK
  24. SENNA ALEXANDRINA [Concomitant]
     Active Substance: SENNA LEAF
     Dosage: UNK
  25. NICOTINAMIDE [Concomitant]
     Active Substance: NIACINAMIDE
  26. ZAPONEX [Suspect]
     Active Substance: CLOZAPINE
     Dosage: UNK, AS NEEDED
     Route: 048
     Dates: start: 20071106, end: 200711
  27. ADCAL [Concomitant]
     Active Substance: CALCIUM CARBONATE
     Dosage: UNK
  28. ZAPONEX [Suspect]
     Active Substance: CLOZAPINE
     Dosage: UNK, AS NEEDED
     Route: 048
     Dates: start: 20071217, end: 20080227
  29. ASCORBIC ACID. [Concomitant]
     Active Substance: ASCORBIC ACID
  30. COLECALCIFEROL [Concomitant]
     Active Substance: CHOLECALCIFEROL

REACTIONS (5)
  - Hepatic congestion [Not Recovered/Not Resolved]
  - Toxicity to various agents [Fatal]
  - Sleep apnoea syndrome [Fatal]
  - Cardiomyopathy [Not Recovered/Not Resolved]
  - Hepatic steatosis [Not Recovered/Not Resolved]
